FAERS Safety Report 4885974-7 (Version None)
Quarter: 2006Q1

REPORT INFORMATION
  Report Type: 
  Country: None (occurrence: None)
  Receive Date: 20060117
  Receipt Date: 20060103
  Transmission Date: 20060701
  Serious: Yes (Hospitalization)
  Sender: FDA-Public Use
  Company Number: 2006RR-01462

PATIENT
  Age: 57 Year
  Sex: Male

DRUGS (7)
  1. IBUPROFEN [Suspect]
     Dosage: TAKEN FOR 7 DAYS 2 WKS, BEFORE ADM, ORAL
     Route: 048
  2. DICLOFENAC (DICLOFENAC) [Suspect]
     Dosage: STARTED AFTER IBUPROFEN, 3 DAYS, ORAL
     Route: 048
  3. LISINOPRIL TABLETS (LISINOPRIL) TABLET [Concomitant]
  4. NOVORAPID [Concomitant]
  5. INSULIN DETEMIR [Concomitant]
  6. SALBUTAMOL (SALBUTAMOL) [Concomitant]
  7. SYMBICORT [Concomitant]

REACTIONS (2)
  - DUODENAL ULCER [None]
  - DUODENITIS [None]
